FAERS Safety Report 12059814 (Version 1)
Quarter: 2016Q1

REPORT INFORMATION
  Report Type: Other
  Country: JP (occurrence: JP)
  Receive Date: 20160210
  Receipt Date: 20160210
  Transmission Date: 20160526
  Serious: Yes (Hospitalization)
  Sender: FDA-Public Use
  Company Number: JP-WARNER CHILCOTT, LLC-1047580

PATIENT
  Age: 82 Year
  Sex: Female

DRUGS (2)
  1. ACTONEL [Suspect]
     Active Substance: RISEDRONATE SODIUM
     Route: 048
  2. ALENDRONATE SODIUM. [Suspect]
     Active Substance: ALENDRONATE SODIUM
     Route: 048

REACTIONS (6)
  - Bone disorder [Not Recovered/Not Resolved]
  - Atypical femur fracture [Not Recovered/Not Resolved]
  - Impaired healing [Not Recovered/Not Resolved]
  - Femur fracture [Not Recovered/Not Resolved]
  - Fall [Not Recovered/Not Resolved]
  - Pain in extremity [Not Recovered/Not Resolved]
